FAERS Safety Report 14034603 (Version 2)
Quarter: 2017Q4

REPORT INFORMATION
  Report Type: Spontaneous
  Country: US (occurrence: US)
  Receive Date: 20171003
  Receipt Date: 20171003
  Transmission Date: 20180321
  Serious: Yes (Other)
  Sender: FDA-Public Use
  Company Number: US-CELGENEUS-USA-20170908430

PATIENT
  Age: 45 Year
  Sex: Female

DRUGS (2)
  1. PROBIOTICS [Concomitant]
     Active Substance: PROBIOTICS NOS
     Indication: DYSBACTERIOSIS
     Route: 065
     Dates: start: 20170922
  2. OTEZLA [Suspect]
     Active Substance: APREMILAST
     Indication: PRODUCT USED FOR UNKNOWN INDICATION
     Dosage: 60 MILLIGRAM
     Route: 048
     Dates: start: 20170909

REACTIONS (3)
  - Diarrhoea [Unknown]
  - Vaginal odour [Unknown]
  - Nausea [Unknown]

NARRATIVE: CASE EVENT DATE: 20170922
